FAERS Safety Report 9579246 (Version 2)
Quarter: 2013Q4

REPORT INFORMATION
  Report Type: Spontaneous
  Country: US (occurrence: US)
  Receive Date: 20131001
  Receipt Date: 20131001
  Transmission Date: 20140711
  Serious: No
  Sender: FDA-Public Use
  Company Number: US-AMGEN-USASP2013011278

PATIENT
  Age: 58 Year
  Sex: Female

DRUGS (6)
  1. ENBREL [Suspect]
     Indication: PSORIASIS
     Dosage: 50 MG, QWK
     Route: 058
     Dates: start: 20130109
  2. VITAMIN D                          /00107901/ [Concomitant]
     Dosage: 1000 UNIT, UNK
  3. FISH OIL [Concomitant]
     Dosage: UNK
  4. VITAMIN E                          /00110501/ [Concomitant]
     Dosage: 1000 UNIT, UNK
  5. VITAMIN B [Concomitant]
     Dosage: UNK
  6. GLUCOSAMINE AND CHONDROITIN WITH MSM [Concomitant]
     Dosage: UNK

REACTIONS (2)
  - Eyelid ptosis [Recovered/Resolved]
  - Injection site pain [Not Recovered/Not Resolved]
